FAERS Safety Report 8241300-7 (Version None)
Quarter: 2012Q1

REPORT INFORMATION
  Report Type: 
  Country: None (occurrence: None)
  Receive Date: 20120328
  Receipt Date: 20120322
  Transmission Date: 20120608
  Serious: Yes (Other)
  Sender: FDA-Public Use
  Company Number: GB-B.I. PHARMACEUTICALS,INC./RIDGEFIELD-2012-UK-00362UK

PATIENT
  Sex: Male

DRUGS (6)
  1. FLUOXETINE [Suspect]
     Dosage: OVERDOSE WITH 10X20MG
  2. ALCOHOL [Suspect]
     Dosage: LEVEL 102
  3. ATORVASTATIN [Suspect]
     Dosage: OVERDOSE WITH 10X10MG
  4. PRADAXA [Suspect]
     Indication: CEREBROVASCULAR ACCIDENT PROPHYLAXIS
     Dosage: OVERDOSE WITH 10X110MG
  5. GABAPENTIN [Suspect]
     Dosage: OVERDOSE WITH 10X100MG
  6. DIAZEPAM [Suspect]
     Dosage: OVERDOSE WITH 10X5 MG

REACTIONS (3)
  - SUICIDAL BEHAVIOUR [None]
  - VOMITING [None]
  - INTENTIONAL OVERDOSE [None]
